FAERS Safety Report 17577857 (Version 4)
Quarter: 2021Q1

REPORT INFORMATION
  Report Type: Report from Study
  Country: None (occurrence: AU)
  Receive Date: 20200324
  Receipt Date: 20210218
  Transmission Date: 20210419
  Serious: Yes (Hospitalization)
  Sender: FDA-Public Use
  Company Number: AU-ABBVIE-20P-008-3321904-00

PATIENT
  Age: 66 Year
  Sex: Female
  Weight: 63.3 kg

DRUGS (19)
  1. VENETOCLAX. [Suspect]
     Active Substance: VENETOCLAX
     Indication: PLASMA CELL MYELOMA
     Route: 048
     Dates: start: 20191216
  2. VALACICLOVIR [Concomitant]
     Active Substance: VALACYCLOVIR HYDROCHLORIDE
     Indication: INFECTION PROPHYLAXIS
     Route: 048
     Dates: start: 201512
  3. PARACETAMOL [Concomitant]
     Active Substance: ACETAMINOPHEN
     Indication: CANCER PAIN
     Dosage: PRN
     Route: 048
     Dates: start: 201512
  4. IMMUNOGLOBULINS [Concomitant]
     Indication: HYPOGAMMAGLOBULINAEMIA
     Route: 042
     Dates: start: 201602
  5. GARLIC. [Concomitant]
     Active Substance: GARLIC
     Indication: NUTRITIONAL SUPPLEMENTATION
     Dosage: PRN
     Route: 048
     Dates: start: 20191217
  6. 100% WHEY PROTEIN ISOLATE [Concomitant]
     Indication: NUTRITIONAL SUPPLEMENTATION
     Dosage: DOSE 1 TBS
     Route: 048
     Dates: start: 20191217
  7. ECHINACEA [Concomitant]
     Active Substance: ECHINACEA, UNSPECIFIED
     Indication: NUTRITIONAL SUPPLEMENTATION
     Dosage: [RN
     Route: 048
     Dates: start: 20191217
  8. PAMIDRONATE DISODIUM. [Concomitant]
     Active Substance: PAMIDRONATE DISODIUM
     Indication: OSTEOPOROSIS PROPHYLAXIS
     Route: 042
     Dates: start: 201602
  9. WELLVONE SUSPENSION [Concomitant]
     Indication: ANTIBIOTIC PROPHYLAXIS
     Dosage: FREQUENCY: MON, WED, FRI
     Route: 048
     Dates: start: 20191216
  10. VITAMIN C [Concomitant]
     Active Substance: ASCORBIC ACID
     Indication: NUTRITIONAL SUPPLEMENTATION
     Dosage: PRN
     Route: 048
     Dates: start: 20191217
  11. SAMBUCOL LOZENGES [Concomitant]
     Indication: PARAINFLUENZAE VIRUS INFECTION
     Dosage: 1 LOZENGE, AS REQUIRED
     Route: 048
     Dates: start: 20200305
  12. PANTOPRAZOLE [Concomitant]
     Active Substance: PANTOPRAZOLE
     Indication: STEM CELL TRANSPLANT
  13. ONDANSETRON [Concomitant]
     Active Substance: ONDANSETRON
     Indication: NAUSEA
     Dosage: PRN
     Route: 048
     Dates: start: 20200211
  14. PANTOPRAZOLE [Concomitant]
     Active Substance: PANTOPRAZOLE
     Indication: PROPHYLAXIS
     Route: 048
     Dates: start: 201611
  15. ALLOPURINOL. [Concomitant]
     Active Substance: ALLOPURINOL
     Indication: PROPHYLAXIS
     Route: 048
     Dates: start: 20191213
  16. DEXAMETHASONE. [Suspect]
     Active Substance: DEXAMETHASONE
     Indication: PLASMA CELL MYELOMA
     Route: 048
     Dates: start: 20191216
  17. FAT BLASTER [Concomitant]
     Indication: NUTRITIONAL SUPPLEMENTATION
     Dosage: DOSE: 1 TBS
     Route: 048
     Dates: start: 20191217
  18. ZINC. [Concomitant]
     Active Substance: ZINC
     Indication: NUTRITIONAL SUPPLEMENTATION
     Dosage: PRN
     Route: 048
     Dates: start: 20191117
  19. MOVICOL [Concomitant]
     Active Substance: POLYETHYLENE GLYCOL 3350\POTASSIUM CHLORIDE\SODIUM BICARBONATE\SODIUM CHLORIDE
     Indication: CONSTIPATION
     Route: 048
     Dates: start: 20200211

REACTIONS (1)
  - Parainfluenzae virus infection [Recovered/Resolved]

NARRATIVE: CASE EVENT DATE: 20200314
